FAERS Safety Report 7878777-2 (Version None)
Quarter: 2011Q4

REPORT INFORMATION
  Report Type: 
  Country: None (occurrence: None)
  Receive Date: 20111021
  Receipt Date: 20110718
  Transmission Date: 20120403
  Serious: No
  Sender: FDA-Public Use
  Company Number: US-005882

PATIENT
  Sex: Male
  Weight: 89.9936 kg

DRUGS (2)
  1. DEGARELIX (240 MG, 80 MG) [Suspect]
     Indication: PROSTATE CANCER
     Dosage: (280 MG 1X SUBCUTANEOUS) ; (80 MG 1X/MONTH SUBCUTANEOUS)
     Route: 058
     Dates: start: 20110616, end: 20110616
  2. DEGARELIX (240 MG, 80 MG) [Suspect]
     Indication: PROSTATE CANCER
     Dosage: (280 MG 1X SUBCUTANEOUS) ; (80 MG 1X/MONTH SUBCUTANEOUS)
     Route: 058
     Dates: start: 20110715

REACTIONS (1)
  - PRURITUS [None]
